FAERS Safety Report 16439780 (Version 1)
Quarter: 2019Q2

REPORT INFORMATION
  Report Type: Spontaneous
  Country: US (occurrence: US)
  Receive Date: 20190617
  Receipt Date: 20190617
  Transmission Date: 20190711
  Serious: Yes (Other)
  Sender: FDA-Public Use
  Company Number: US-BAYER-2019-114559

PATIENT
  Age: 91 Year
  Sex: Female
  Weight: 54 kg

DRUGS (4)
  1. FAMOTIDIN [Concomitant]
     Active Substance: FAMOTIDINE
  2. CLARITIN [Suspect]
     Active Substance: LORATADINE
     Indication: NASOPHARYNGITIS
  3. CLARITIN [Suspect]
     Active Substance: LORATADINE
     Indication: HYPERSENSITIVITY
     Dosage: 1 DF
     Route: 048
     Dates: start: 20190612, end: 20190612
  4. LOSARTAN. [Concomitant]
     Active Substance: LOSARTAN

REACTIONS (4)
  - Eye pruritus [Not Recovered/Not Resolved]
  - Blood pressure increased [Unknown]
  - Dizziness [Not Recovered/Not Resolved]
  - Expired product administered [Unknown]

NARRATIVE: CASE EVENT DATE: 20190612
